FAERS Safety Report 4698524-5 (Version None)
Quarter: 2005Q2

REPORT INFORMATION
  Report Type: 
  Country: None (occurrence: None)
  Receive Date: 20050622
  Receipt Date: 20050609
  Transmission Date: 20051028
  Serious: Yes (Other)
  Sender: FDA-Public Use
  Company Number: 2005044213

PATIENT
  Sex: Female

DRUGS (9)
  1. CELEBREX [Suspect]
     Indication: PAIN
  2. METHOTREXATE [Suspect]
     Indication: ILL-DEFINED DISORDER
  3. NPH INSULIN [Concomitant]
  4. ALEVE [Concomitant]
  5. PREVACID [Concomitant]
  6. NAPROSYN [Concomitant]
  7. MILK OF MAGNESIA TAB [Concomitant]
  8. FOLIC ACID [Concomitant]
  9. PREDNISONE [Concomitant]

REACTIONS (18)
  - ARTHRALGIA [None]
  - BLOOD PRESSURE INCREASED [None]
  - BONE PAIN [None]
  - BREATH SOUNDS DECREASED [None]
  - CONDITION AGGRAVATED [None]
  - CONSTIPATION [None]
  - DRUG INEFFECTIVE [None]
  - EXOPHTHALMOS [None]
  - FATIGUE [None]
  - GASTROINTESTINAL DISORDER [None]
  - HEADACHE [None]
  - MOUTH ULCERATION [None]
  - OEDEMA PERIPHERAL [None]
  - PAIN IN EXTREMITY [None]
  - PARAESTHESIA [None]
  - PULSE PRESSURE DECREASED [None]
  - RHEUMATOID ARTHRITIS [None]
  - THERAPY NON-RESPONDER [None]
